FAERS Safety Report 16566677 (Version 5)
Quarter: 2020Q3

REPORT INFORMATION
  Report Type: Spontaneous
  Country: US (occurrence: US)
  Receive Date: 20190712
  Receipt Date: 20200702
  Transmission Date: 20201102
  Serious: Yes (Hospitalization, Other)
  Sender: FDA-Public Use
  Company Number: US-PFIZER INC-2019253601

PATIENT
  Age: 72 Year
  Sex: Female
  Weight: 70.31 kg

DRUGS (3)
  1. CEFTAROLINE FOSAMIL [Concomitant]
     Active Substance: CEFTAROLINE FOSAMIL
     Dosage: 10 ML, MONTHLY (5CC IN ONE SIDE OF BUTT AND 5CC ON OTHER SIDE OF BUTT ONCE A MONTH)
     Dates: start: 201610
  2. IBRANCE [Suspect]
     Active Substance: PALBOCICLIB
     Indication: BREAST CANCER METASTATIC
     Dosage: UNK
     Dates: start: 201610, end: 20190211
  3. FASLODEX [Suspect]
     Active Substance: FULVESTRANT
     Indication: BREAST CANCER METASTATIC
     Dosage: 125 MG, UNK (125 MG THINK TWO INJECTION ONCE A MONTH)

REACTIONS (3)
  - Neoplasm progression [Unknown]
  - Peripheral artery thrombosis [Recovering/Resolving]
  - Thrombosis [Not Recovered/Not Resolved]

NARRATIVE: CASE EVENT DATE: 2017
